FAERS Safety Report 23000105 (Version 3)
Quarter: 2023Q4

REPORT INFORMATION
  Report Type: Spontaneous
  Country: FR (occurrence: FR)
  Receive Date: 20230928
  Receipt Date: 20231120
  Transmission Date: 20240110
  Serious: Yes (Other)
  Sender: FDA-Public Use
  Company Number: FR-SA-SAC20230919000354

PATIENT
  Sex: Female

DRUGS (1)
  1. DUPIXENT [Suspect]
     Active Substance: DUPILUMAB
     Indication: Chronic rhinosinusitis with nasal polyps
     Dosage: 300 MG, QOW
     Route: 058
     Dates: start: 20230331

REACTIONS (4)
  - Lip and/or oral cavity cancer recurrent [Unknown]
  - Bone cancer [Not Recovered/Not Resolved]
  - Rash papular [Unknown]
  - Pain [Unknown]

NARRATIVE: CASE EVENT DATE: 20230101
